FAERS Safety Report 13994649 (Version 1)
Quarter: 2017Q3

REPORT INFORMATION
  Report Type: Spontaneous
  Country: US (occurrence: None)
  Receive Date: 20170920
  Receipt Date: 20170920
  Transmission Date: 20171128
  Serious: No
  Sender: FDA-Public Use
  Company Number: None

PATIENT
  Age: 82 Year
  Sex: Male
  Weight: 69.85 kg

DRUGS (9)
  1. BUDESONIDE. [Concomitant]
     Active Substance: BUDESONIDE
  2. VALACYCLOVIR [Concomitant]
     Active Substance: VALACYCLOVIR HYDROCHLORIDE
  3. GUAIFENESIN. [Concomitant]
     Active Substance: GUAIFENESIN
  4. ATORVASTATIN [Concomitant]
     Active Substance: ATORVASTATIN
  5. LOPERAMIDE [Concomitant]
     Active Substance: LOPERAMIDE
  6. AMLODIPINE BESYLATE 5MG TAB [Suspect]
     Active Substance: AMLODIPINE BESYLATE
     Indication: HYPERTENSION
     Route: 048
     Dates: start: 20170203
  7. EQUATE [Concomitant]
     Active Substance: UNSPECIFIED INGREDIENT
  8. TERAZOSIN HCL [Concomitant]
     Active Substance: TERAZOSIN HYDROCHLORIDE
  9. AMLODIPINE BESYLATE. [Concomitant]
     Active Substance: AMLODIPINE BESYLATE

REACTIONS (1)
  - Secretion discharge [None]
